FAERS Safety Report 8436720-1 (Version None)
Quarter: 2012Q2

REPORT INFORMATION
  Report Type: 
  Country: None (occurrence: None)
  Receive Date: 20120614
  Receipt Date: 20120606
  Transmission Date: 20120825
  Serious: Yes (Hospitalization)
  Sender: FDA-Public Use
  Company Number: US-US-EMD SERONO, INC.-234283J09USA

PATIENT
  Sex: Female
  Weight: 86 kg

DRUGS (9)
  1. DETROL [Concomitant]
     Indication: URINARY INCONTINENCE
  2. DETROL [Concomitant]
  3. CYMBALTA [Concomitant]
     Indication: DEPRESSION
  4. AMLODIPINE [Concomitant]
     Indication: HYPERTENSION
  5. LYRICA [Concomitant]
     Indication: PAIN IN EXTREMITY
  6. DULCOLAX [Concomitant]
     Indication: CONSTIPATION
  7. REBIF [Suspect]
     Indication: MULTIPLE SCLEROSIS
     Route: 058
     Dates: start: 20090416
  8. BACLOFEN [Concomitant]
     Indication: MUSCLE SPASMS
  9. METOPROLOL TARTRATE [Concomitant]
     Indication: HYPERTENSION

REACTIONS (5)
  - HEART RATE INCREASED [None]
  - MUSCULAR WEAKNESS [None]
  - PARAESTHESIA [None]
  - HYPERTENSION [None]
  - CARDIAC DISORDER [None]
